FAERS Safety Report 4410799-6 (Version None)
Quarter: 2004Q3

REPORT INFORMATION
  Report Type: 
  Country: None (occurrence: None)
  Receive Date: 20040729
  Receipt Date: 20040630
  Transmission Date: 20050211
  Serious: Yes (Hospitalization)
  Sender: FDA-Public Use
  Company Number: US-MERCK-0407USA00120

PATIENT
  Age: 48 Year
  Sex: Male
  Weight: 90 kg

DRUGS (3)
  1. INVANZ [Suspect]
     Indication: INFECTION
     Route: 042
     Dates: start: 20040607, end: 20040609
  2. INSULIN [Concomitant]
     Indication: HYPERGLYCAEMIA
     Route: 058
  3. LACTULOSE [Concomitant]
     Indication: HEPATIC ENCEPHALOPATHY
     Route: 048
     Dates: start: 20040607

REACTIONS (1)
  - HEPATITIS [None]
